FAERS Safety Report 9128017 (Version 1)
Quarter: 2013Q1

REPORT INFORMATION
  Report Type: Spontaneous
  Country: US (occurrence: US)
  Receive Date: 20130125
  Receipt Date: 20130125
  Transmission Date: 20140127
  Serious: Yes (Hospitalization, Disabling)
  Sender: FDA-Public Use
  Company Number: US-ROCHE-1182519

PATIENT
  Age: 46 Year
  Sex: Female
  Weight: 68.2 kg

DRUGS (6)
  1. RITUXIMAB [Suspect]
     Indication: PSEUDOLYMPHOMA
     Route: 042
     Dates: start: 20120827
  2. RITUXIMAB [Suspect]
     Indication: EXOPHTHALMOS
     Route: 042
     Dates: start: 20120910
  3. SYNTHROID [Concomitant]
     Route: 048
     Dates: start: 1991
  4. ALEVE [Concomitant]
     Dosage: QHS OR BID
     Route: 048
     Dates: start: 2003
  5. NUVARING [Concomitant]
     Route: 067
     Dates: start: 1999
  6. REFRESH EYE DROPS (UNK INGREDIENTS) [Concomitant]
     Route: 065

REACTIONS (1)
  - Blindness unilateral [Unknown]
